FAERS Safety Report 15290859 (Version 1)
Quarter: 2018Q3

REPORT INFORMATION
  Report Type: Spontaneous
  Country: GB (occurrence: GB)
  Receive Date: 20180817
  Receipt Date: 20180817
  Transmission Date: 20181010
  Serious: Yes (Other)
  Sender: FDA-Public Use
  Company Number: GB-TEVA-2018-GB-941938

PATIENT
  Age: 71 Year
  Sex: Female
  Weight: 64 kg

DRUGS (8)
  1. DERMACOOL [Concomitant]
     Indication: PRURITUS
     Dosage: APPLY
     Dates: start: 20180614
  2. CLARITHROMYCIN. [Concomitant]
     Active Substance: CLARITHROMYCIN
     Dosage: 2 DOSAGE FORMS DAILY; FOR 7 DAYS
     Dates: start: 20180614, end: 20180621
  3. PREDNISOLONE. [Concomitant]
     Active Substance: PREDNISOLONE
     Dosage: 4 DOSAGE FORMS DAILY; FOR 3 DAYS
     Dates: start: 20180710
  4. MENTHOL. [Concomitant]
     Active Substance: MENTHOL
     Dosage: APPLY
     Dates: start: 20180530, end: 20180627
  5. CHLORPHENAMINE [Concomitant]
     Active Substance: CHLORPHENIRAMINE MALEATE
     Indication: HYPERSENSITIVITY
     Dosage: EVERY 4?6 HOURS TO SUPPRESS ALLERGIC SYMPTOMS
     Dates: start: 20180710
  6. FUROSEMIDE. [Suspect]
     Active Substance: FUROSEMIDE
     Indication: OEDEMA
     Route: 065
     Dates: start: 20180710
  7. DERMOVATE [Concomitant]
     Active Substance: CLOBETASOL
     Dosage: 1?2 TIMES/DAY
     Dates: start: 20180530, end: 20180627
  8. DERMOL [Concomitant]
     Active Substance: BENZALKONIUM CHLORIDE\CHLORHEXIDINE HYDROCHLORIDE\ISOPROPYL MYRISTATE\PARAFFIN
     Dosage: USE AS A SOAP SUBSTITUTE
     Dates: start: 20170822

REACTIONS (1)
  - Face oedema [Recovering/Resolving]

NARRATIVE: CASE EVENT DATE: 20180710
